FAERS Safety Report 10626235 (Version 1)
Quarter: 2014Q4

REPORT INFORMATION
  Report Type: Spontaneous
  Country: IN (occurrence: IN)
  Receive Date: 20141204
  Receipt Date: 20141204
  Transmission Date: 20150529
  Serious: Yes (Other)
  Sender: FDA-Public Use
  Company Number: IN-WATSON-2014-25923

PATIENT
  Age: 28 Year
  Sex: Male

DRUGS (6)
  1. ZIPRASIDONE (UNKNOWN) [Interacting]
     Active Substance: ZIPRASIDONE
     Dosage: 40 MG, DAILY
     Route: 065
  2. ZIPRASIDONE (UNKNOWN) [Interacting]
     Active Substance: ZIPRASIDONE
     Dosage: 60 MG, DAILY
     Route: 065
  3. CLONAZEPAM. [Concomitant]
     Active Substance: CLONAZEPAM
     Indication: PANIC ATTACK
     Dosage: UNK, TAPERING DOSE
     Route: 065
  4. ZIPRASIDONE (UNKNOWN) [Suspect]
     Active Substance: ZIPRASIDONE
     Indication: SCHIZOPHRENIA, PARANOID TYPE
     Dosage: 80 MG, DAILY
     Route: 065
  5. SERTRALINE [Interacting]
     Active Substance: SERTRALINE HYDROCHLORIDE
     Indication: SCHIZOPHRENIA, PARANOID TYPE
     Dosage: 25 MG, DAILY
     Route: 065
  6. CLONAZEPAM. [Concomitant]
     Active Substance: CLONAZEPAM
     Dosage: UNK, TAPERING DOSE
     Route: 065

REACTIONS (2)
  - Drug interaction [Unknown]
  - Extrapyramidal disorder [Recovered/Resolved]
